FAERS Safety Report 4847246-6 (Version None)
Quarter: 2005Q4

REPORT INFORMATION
  Report Type: 
  Country: None (occurrence: None)
  Receive Date: 20051207
  Receipt Date: 20051118
  Transmission Date: 20060501
  Serious: Yes (Other)
  Sender: FDA-Public Use
  Company Number: JP-JPN-A20052835

PATIENT
  Sex: Male
  Weight: 2.34 kg

DRUGS (3)
  1. ZOVIRAX [Suspect]
  2. KENKETSU GLOVENIN-I-NICHIYAKU [Concomitant]
     Indication: INFECTION
     Dosage: 5G THREE TIMES PER DAY
     Dates: start: 20050607, end: 20050609
  3. PANSPORIN [Concomitant]

REACTIONS (3)
  - DRUG EXPOSURE DURING PREGNANCY [None]
  - PREMATURE BABY [None]
  - SMALL FOR DATES BABY [None]
